FAERS Safety Report 7494836-0 (Version None)
Quarter: 2011Q2

REPORT INFORMATION
  Report Type: 
  Country: None (occurrence: None)
  Receive Date: 20110520
  Receipt Date: 20110516
  Transmission Date: 20111010
  Serious: Yes (Other)
  Sender: FDA-Public Use
  Company Number: B0719866A

PATIENT
  Age: 62 Year
  Sex: Male

DRUGS (6)
  1. PHENTOLAMINE MESYLATE [Concomitant]
     Route: 065
     Dates: start: 20041218
  2. CARVEDILOL [Concomitant]
     Route: 065
     Dates: start: 20041218
  3. NITROGLYCERIN [Concomitant]
     Route: 065
     Dates: start: 20041218
  4. PERINDOPRIL ERBUMINE [Concomitant]
     Route: 065
     Dates: start: 20041218
  5. CEFTAZIDIME [Suspect]
     Indication: AZOTAEMIA
     Dosage: 1G PER DAY
     Route: 042
     Dates: start: 20041208, end: 20041217
  6. NORVASC [Concomitant]
     Route: 065
     Dates: start: 20041218

REACTIONS (8)
  - TOXIC ENCEPHALOPATHY [None]
  - NAUSEA [None]
  - DEPRESSED LEVEL OF CONSCIOUSNESS [None]
  - DIZZINESS [None]
  - TREMOR [None]
  - CONVULSION [None]
  - DECREASED APPETITE [None]
  - EPILEPSY [None]
